FAERS Safety Report 9255778 (Version 3)
Quarter: 2013Q2

REPORT INFORMATION
  Report Type: Spontaneous
  Country: US (occurrence: US)
  Receive Date: 20130425
  Receipt Date: 20130613
  Transmission Date: 20140414
  Serious: Yes (Hospitalization, Other)
  Sender: FDA-Public Use
  Company Number: US-BRISTOL-MYERS SQUIBB COMPANY-18803965

PATIENT
  Age: 54 Year
  Sex: Male

DRUGS (4)
  1. NULOJIX [Suspect]
     Indication: RENAL TRANSPLANT
     Route: 042
     Dates: start: 20070925
  2. PREDNISONE [Concomitant]
     Indication: RENAL TRANSPLANT
  3. IVIG [Concomitant]
     Indication: RENAL TRANSPLANT
     Route: 042
  4. MYCOPHENOLATE MOFETIL [Concomitant]
     Indication: RENAL TRANSPLANT
     Dates: start: 20070925

REACTIONS (4)
  - B-cell lymphoma [Unknown]
  - Renal mass [Unknown]
  - Epstein-Barr virus infection [Recovering/Resolving]
  - Pyrexia [Unknown]
